FAERS Safety Report 21239800 (Version 4)
Quarter: 2023Q1

REPORT INFORMATION
  Report Type: Report from Study
  Country: US (occurrence: US)
  Receive Date: 20220822
  Receipt Date: 20230131
  Transmission Date: 20230418
  Serious: Yes (Hospitalization, Other)
  Sender: FDA-Public Use
  Company Number: US-TAKEDA-2022TUS056684

PATIENT
  Age: 54 Year
  Sex: Male

DRUGS (2)
  1. PONATINIB [Suspect]
     Active Substance: PONATINIB
     Indication: Acute lymphocytic leukaemia
     Dosage: 15 MILLIGRAM, QD
     Route: 065
     Dates: start: 202201
  2. BREXUCABTAGENE AUTOLEUCEL [Suspect]
     Active Substance: BREXUCABTAGENE AUTOLEUCEL
     Indication: Acute lymphocytic leukaemia
     Dosage: UNK
     Route: 042
     Dates: start: 20220124

REACTIONS (15)
  - Cognitive disorder [Recovered/Resolved]
  - Memory impairment [Recovered/Resolved]
  - Aphasia [Recovering/Resolving]
  - Dysgraphia [Recovered/Resolved]
  - Early satiety [Unknown]
  - Nervous system disorder [Unknown]
  - Panic reaction [Unknown]
  - Hypersomnia [Not Recovered/Not Resolved]
  - Nausea [Recovering/Resolving]
  - Decreased appetite [Unknown]
  - Fatigue [Not Recovered/Not Resolved]
  - Abdominal distension [Not Recovered/Not Resolved]
  - Pyrexia [Recovered/Resolved]
  - Abdominal pain upper [Unknown]
  - Tremor [Unknown]

NARRATIVE: CASE EVENT DATE: 20220101
